FAERS Safety Report 12627625 (Version 2)
Quarter: 2016Q3

REPORT INFORMATION
  Report Type: Spontaneous
  Country: US (occurrence: US)
  Receive Date: 20160805
  Receipt Date: 20160906
  Transmission Date: 20161109
  Serious: Yes (Hospitalization, Other)
  Sender: FDA-Public Use
  Company Number: US-009507513-1608USA002897

PATIENT
  Age: 33 Year
  Sex: Male

DRUGS (14)
  1. HEXADROL [Suspect]
     Active Substance: DEXAMETHASONE
     Indication: ACUTE LYMPHOCYTIC LEUKAEMIA REFRACTORY
     Dosage: 8 MG, QOD
     Route: 048
     Dates: start: 2016
  2. METHOTREXATE. [Suspect]
     Active Substance: METHOTREXATE
     Dosage: UNK UNK, ONCE
     Route: 037
     Dates: start: 20160606, end: 20160606
  3. CYTARABINE. [Suspect]
     Active Substance: CYTARABINE
     Dosage: UNK UNK, ONCE
     Route: 037
     Dates: start: 20160606, end: 20160606
  4. CYCLOPHOSPHAMIDE. [Suspect]
     Active Substance: CYCLOPHOSPHAMIDE
     Indication: ACUTE LYMPHOCYTIC LEUKAEMIA REFRACTORY
     Dosage: UNK UNK, QW
     Dates: start: 2016
  5. METHOTREXATE. [Suspect]
     Active Substance: METHOTREXATE
     Dosage: UNK UNK, ONCE
     Route: 037
     Dates: start: 20160602, end: 20160602
  6. HYDROCORTISONE. [Suspect]
     Active Substance: HYDROCORTISONE
     Indication: ACUTE LYMPHOCYTIC LEUKAEMIA REFRACTORY
     Dosage: UNK UNK, ONCE
     Route: 037
     Dates: start: 20160602, end: 20160602
  7. HYDROCORTISONE. [Suspect]
     Active Substance: HYDROCORTISONE
     Dosage: UNK UNK, ONCE
     Route: 037
     Dates: start: 20160606, end: 20160606
  8. CYTARABINE. [Suspect]
     Active Substance: CYTARABINE
     Indication: ACUTE LYMPHOCYTIC LEUKAEMIA REFRACTORY
     Dosage: UNK
     Route: 037
  9. DEXAMETHASONE. [Suspect]
     Active Substance: DEXAMETHASONE
     Indication: ACUTE LYMPHOCYTIC LEUKAEMIA REFRACTORY
     Dosage: 40 MG, THE DAY OF AND THE DAY AFTER CYCLOPHOSPHAMIDE
     Dates: start: 2016
  10. DEXAMETHASONE. [Suspect]
     Active Substance: DEXAMETHASONE
     Dosage: 10 MG, DAILY
     Dates: start: 2016
  11. DEXAMETHASONE. [Suspect]
     Active Substance: DEXAMETHASONE
     Dosage: 8 MG, EVERY OTHER DAY
     Route: 048
     Dates: start: 2016
  12. CYTARABINE. [Suspect]
     Active Substance: CYTARABINE
     Dosage: UNK UNK, ONCE
     Route: 037
     Dates: start: 20160602, end: 20160602
  13. ZOSYN [Concomitant]
     Active Substance: PIPERACILLIN SODIUM\TAZOBACTAM SODIUM
  14. METHOTREXATE. [Suspect]
     Active Substance: METHOTREXATE
     Indication: ACUTE LYMPHOCYTIC LEUKAEMIA REFRACTORY
     Route: 037

REACTIONS (7)
  - Acute lymphocytic leukaemia [Unknown]
  - Pyrexia [Unknown]
  - Thrombocytopenia [Unknown]
  - Back pain [Unknown]
  - Neck pain [Unknown]
  - Tachycardia [Unknown]
  - Anaemia [Unknown]

NARRATIVE: CASE EVENT DATE: 2016
